FAERS Safety Report 9797141 (Version 3)
Quarter: 2014Q1

REPORT INFORMATION
  Report Type: Spontaneous
  Country: GB (occurrence: GB)
  Receive Date: 20140106
  Receipt Date: 20140227
  Transmission Date: 20141002
  Serious: Yes (Other)
  Sender: FDA-Public Use
  Company Number: PHFR2013GB006802

PATIENT
  Sex: Female

DRUGS (6)
  1. NILOTINIB [Suspect]
     Indication: CHRONIC MYELOID LEUKAEMIA
     Dosage: 200 MG, DAILY
     Route: 048
     Dates: start: 20130514
  2. DIHYDROCODEINE [Concomitant]
     Indication: ARTHRALGIA
     Dosage: UNK UKN, UNK
     Route: 048
  3. TRIMETHOPRIM [Concomitant]
     Indication: URINARY TRACT INFECTION
     Dosage: 10 MG, DAILY
     Route: 048
  4. SOLIFENACIN [Concomitant]
     Dosage: 10 MG, DAILY
     Route: 048
  5. LANSOPRAZOLE [Concomitant]
     Indication: DYSPEPSIA
     Dosage: 30 MG, DAILY
  6. ETODOLAC [Concomitant]
     Dosage: 600 MG, DAILY
     Route: 048

REACTIONS (1)
  - Visual acuity reduced [Not Recovered/Not Resolved]
